FAERS Safety Report 6612825-2 (Version None)
Quarter: 2010Q1

REPORT INFORMATION
  Report Type: 
  Country: None (occurrence: None)
  Receive Date: 20100303
  Receipt Date: 20100224
  Transmission Date: 20100710
  Serious: Yes (Other)
  Sender: FDA-Public Use
  Company Number: US-AMGEN-QUU362133

PATIENT
  Sex: Male
  Weight: 75.4 kg

DRUGS (5)
  1. EPOGEN [Suspect]
     Indication: DIALYSIS
     Route: 042
  2. CLONIDINE [Concomitant]
  3. NIFEDIPINE [Concomitant]
  4. RAMIPRIL [Concomitant]
  5. SEVELAMER [Concomitant]

REACTIONS (4)
  - ANTI-ERYTHROPOIETIN ANTIBODY POSITIVE [None]
  - APLASIA PURE RED CELL [None]
  - DRUG INEFFECTIVE [None]
  - NON-NEUTRALISING ANTIBODIES POSITIVE [None]
